FAERS Safety Report 23753325 (Version 1)
Quarter: 2024Q2

REPORT INFORMATION
  Report Type: Spontaneous
  Country: US (occurrence: None)
  Receive Date: 20240417
  Receipt Date: 20240417
  Transmission Date: 20240717
  Serious: Yes (Hospitalization)
  Sender: FDA-Public Use
  Company Number: None

PATIENT
  Sex: Male

DRUGS (2)
  1. TOBI PODHALER [Suspect]
     Active Substance: TOBRAMYCIN
     Indication: Cystic fibrosis
     Dosage: 112 M,G TWICE A DAY RESPIRTORY (INHALATION)?
     Route: 055
     Dates: start: 20221117
  2. CREON [Suspect]
     Active Substance: PANCRELIPASE AMYLASE\PANCRELIPASE LIPASE\PANCRELIPASE PROTEASE
     Indication: Cystic fibrosis
     Dosage: 144000 IU INTERNATIONAL UNIT(S) 3 TIMES A DAY ORAL?
     Route: 048
     Dates: start: 20150521

REACTIONS (1)
  - Intestinal obstruction [None]
